APPROVED DRUG PRODUCT: PROMETHAZINE W/ DEXTROMETHORPHAN
Active Ingredient: DEXTROMETHORPHAN HYDROBROMIDE; PROMETHAZINE HYDROCHLORIDE
Strength: 15MG/5ML;6.25MG/5ML
Dosage Form/Route: SYRUP;ORAL
Application: A088864 | Product #001 | TE Code: AA
Applicant: PHARMOBEDIENT CONSULTING LLC
Approved: Jan 4, 1985 | RLD: No | RS: No | Type: RX